FAERS Safety Report 24661537 (Version 1)
Quarter: 2024Q4

REPORT INFORMATION
  Report Type: Spontaneous
  Country: US (occurrence: US)
  Receive Date: 20241125
  Receipt Date: 20241125
  Transmission Date: 20250115
  Serious: No
  Sender: MISSION PHARMACAL COMPANY
  Company Number: US-Mission Pharmacal Company-2165924

PATIENT
  Age: 53 Year
  Sex: Male

DRUGS (7)
  1. GABAPENTIN [Suspect]
     Active Substance: GABAPENTIN
  2. THIOLA EC [Concomitant]
     Active Substance: TIOPRONIN
     Dates: start: 20231115
  3. ROSUVASTATIN [Concomitant]
     Active Substance: ROSUVASTATIN
  4. OZEMPIC [Concomitant]
     Active Substance: SEMAGLUTIDE
  5. VITAMINS [Concomitant]
     Active Substance: VITAMINS
  6. METFORMIN [Concomitant]
     Active Substance: METFORMIN HYDROCHLORIDE
  7. JARDIANCE [Concomitant]
     Active Substance: EMPAGLIFLOZIN

REACTIONS (1)
  - Drug ineffective [Unknown]
